FAERS Safety Report 9894213 (Version 3)
Quarter: 2015Q1

REPORT INFORMATION
  Report Type: Spontaneous
  Country: US (occurrence: US)
  Receive Date: 20140213
  Receipt Date: 20150102
  Transmission Date: 20150721
  Serious: Yes (Other)
  Sender: FDA-Public Use
  Company Number: US-BAYER-2014-022828

PATIENT
  Age: 31 Year
  Sex: Female

DRUGS (5)
  1. ULTRAM [Concomitant]
     Active Substance: TRAMADOL HYDROCHLORIDE
  2. FLEXERIL [Concomitant]
     Active Substance: CYCLOBENZAPRINE HYDROCHLORIDE
  3. MIRENA [Suspect]
     Active Substance: LEVONORGESTREL
     Indication: CONTRACEPTION
     Dosage: 20 MCG/24HR, CONT
     Route: 015
     Dates: start: 200804, end: 20130315
  4. CELEXA [Concomitant]
     Active Substance: CITALOPRAM HYDROBROMIDE
  5. NEURONTIN [Concomitant]
     Active Substance: GABAPENTIN

REACTIONS (14)
  - Pregnancy with contraceptive device [Recovered/Resolved]
  - Device dislocation [None]
  - Device failure [None]
  - Depression [None]
  - Embedded device [None]
  - Injury [None]
  - Emotional distress [None]
  - Pain [None]
  - Medical device discomfort [None]
  - Scar [None]
  - Drug ineffective [None]
  - Medical device pain [None]
  - Procedural pain [None]
  - Uterine perforation [None]

NARRATIVE: CASE EVENT DATE: 20130315
